FAERS Safety Report 22314917 (Version 1)
Quarter: 2023Q2

REPORT INFORMATION
  Report Type: Spontaneous
  Country: US (occurrence: None)
  Receive Date: 20230511
  Receipt Date: 20230511
  Transmission Date: 20230722
  Serious: No
  Sender: FDA-Public Use
  Company Number: None

PATIENT
  Age: 44 Year
  Sex: Female
  Weight: 90 kg

DRUGS (9)
  1. ALPRAZOLAM [Suspect]
     Active Substance: ALPRAZOLAM
     Indication: Anxiety
     Dosage: FREQUENCY : TWICE A DAY;?
     Route: 048
     Dates: start: 20230415, end: 20230510
  2. ALPRAZOLAM [Suspect]
     Active Substance: ALPRAZOLAM
     Indication: Panic attack
  3. ALPRAZOLAM [Suspect]
     Active Substance: ALPRAZOLAM
     Indication: Arrhythmia
  4. SERTRALINE [Concomitant]
     Active Substance: SERTRALINE HYDROCHLORIDE
  5. GABAPENTIN [Concomitant]
     Active Substance: GABAPENTIN
  6. CLONIDINE [Concomitant]
     Active Substance: CLONIDINE
  7. LILETTA [Concomitant]
     Active Substance: LEVONORGESTREL
  8. TYLENOL [Concomitant]
     Active Substance: ACETAMINOPHEN
  9. MAGNESIUM GLYCINATE [Concomitant]
     Active Substance: MAGNESIUM GLYCINATE

REACTIONS (7)
  - Product substitution issue [None]
  - General physical health deterioration [None]
  - Mental impairment [None]
  - Drug ineffective [None]
  - Tremor [None]
  - Withdrawal syndrome [None]
  - Product quality issue [None]

NARRATIVE: CASE EVENT DATE: 20230415
